FAERS Safety Report 6237803-7 (Version None)
Quarter: 2009Q2

REPORT INFORMATION
  Report Type: 
  Country: None (occurrence: None)
  Receive Date: 20090617
  Receipt Date: 20090605
  Transmission Date: 20091009
  Serious: Yes (Other)
  Sender: FDA-Public Use
  Company Number: VISP-NO-0906S-0232

PATIENT
  Age: 62 Year
  Sex: Male

DRUGS (3)
  1. VISIPAQUE [Suspect]
     Indication: DRUG USE FOR UNKNOWN INDICATION
     Dosage: 65 MG, SINGLE DOES, INTRAVASCULAR
     Dates: start: 20090529, end: 20090529
  2. METOPROLOL TARTRATE (SELOKEN) [Concomitant]
  3. NITROGLYCERIN [Concomitant]

REACTIONS (3)
  - CONTRAST MEDIA REACTION [None]
  - GENERAL PHYSICAL HEALTH DETERIORATION [None]
  - LOSS OF CONSCIOUSNESS [None]
